FAERS Safety Report 7310705-0 (Version None)
Quarter: 2011Q1

REPORT INFORMATION
  Report Type: 
  Country: None (occurrence: None)
  Receive Date: 20110224
  Receipt Date: 20100511
  Transmission Date: 20110831
  Serious: Yes (Other)
  Sender: FDA-Public Use
  Company Number: US-BRISTOL-MYERS SQUIBB COMPANY-15101959

PATIENT
  Age: 42 Year
  Sex: Female

DRUGS (23)
  1. CODEINE [Suspect]
  2. SULFA [Suspect]
  3. CLONIDINE [Concomitant]
  4. DOCUSATE [Concomitant]
  5. HYDROXYZINE [Concomitant]
  6. LISINOPRIL [Concomitant]
  7. LORAZEPAM [Concomitant]
  8. METOPROLOL [Concomitant]
  9. ONDANSETRON [Concomitant]
  10. TRIAMCINOLONE [Concomitant]
  11. AMLODIPINE [Concomitant]
  12. COMPAZINE [Concomitant]
  13. ZYRTEC [Concomitant]
  14. SPIRONOLACTONE [Concomitant]
  15. VALSARTAN [Concomitant]
  16. TRIAMTERENE AND HYDROCHLOROTHIAZIDE [Concomitant]
  17. HYDROMORPHONE [Concomitant]
  18. NYSTATIN [Concomitant]
  19. SORAFENIB [Concomitant]
  20. PERCOCET [Concomitant]
  21. CLOTRIMAZOLE [Concomitant]
  22. MITOTANE [Suspect]
     Indication: ADRENOCORTICAL CARCINOMA
  23. FAMOTIDINE [Concomitant]

REACTIONS (2)
  - DRUG INEFFECTIVE [None]
  - RASH [None]
